FAERS Safety Report 11695895 (Version 1)
Quarter: 2015Q4

REPORT INFORMATION
  Report Type: Report from Study
  Country: US (occurrence: US)
  Receive Date: 20151104
  Receipt Date: 20151104
  Transmission Date: 20160304
  Serious: Yes (Other)
  Sender: FDA-Public Use
  Company Number: US-ROCHE-1073907

PATIENT
  Sex: Female

DRUGS (3)
  1. EVEROLIMUS [Suspect]
     Active Substance: EVEROLIMUS
     Indication: BREAST CANCER METASTATIC
     Route: 042
  2. PACLITAXEL. [Suspect]
     Active Substance: PACLITAXEL
     Indication: BREAST CANCER METASTATIC
     Dosage: ON DAY 1, 8 AND 15 OF EACH 28 DAY CYCLE
     Route: 042
  3. BEVACIZUMAB [Suspect]
     Active Substance: BEVACIZUMAB
     Indication: BREAST CANCER METASTATIC
     Dosage: DAYS 1 AND 15 EVERY 28 DAYS
     Route: 042

REACTIONS (19)
  - Neutropenia [Unknown]
  - Rash [Unknown]
  - Dyspnoea [Unknown]
  - Proteinuria [Unknown]
  - Anaemia [Unknown]
  - Myalgia [Unknown]
  - Weight decreased [Unknown]
  - Hypertension [Unknown]
  - Neuropathy peripheral [Unknown]
  - Decreased appetite [Unknown]
  - Thrombocytopenia [Unknown]
  - Fatigue [Unknown]
  - Stomatitis [Unknown]
  - Febrile neutropenia [Unknown]
  - Hypercholesterolaemia [Unknown]
  - Diarrhoea [Unknown]
  - Vomiting [Unknown]
  - Arthralgia [Unknown]
  - Nausea [Unknown]
